FAERS Safety Report 5851793-8 (Version None)
Quarter: 2008Q3

REPORT INFORMATION
  Report Type: 
  Country: None (occurrence: None)
  Receive Date: 20080820
  Receipt Date: 20080812
  Transmission Date: 20090109
  Serious: Yes (Hospitalization, Disabling)
  Sender: FDA-Public Use
  Company Number: US-GILEAD-2008-0017791

PATIENT
  Sex: Female
  Weight: 68 kg

DRUGS (8)
  1. TRUVADA [Suspect]
     Indication: HIV INFECTION
     Route: 048
     Dates: start: 20070725
  2. TMC125 [Suspect]
     Indication: HIV INFECTION
     Route: 048
     Dates: start: 20070625
  3. PREZISTA [Suspect]
     Indication: HIV INFECTION
     Route: 048
     Dates: start: 20070725
  4. RITONAVIR [Suspect]
     Indication: HIV INFECTION
     Route: 048
  5. RALTEGRAVIR [Suspect]
     Indication: HIV INFECTION
     Route: 048
     Dates: start: 20070725
  6. VALTREX [Concomitant]
     Dates: start: 20051101
  7. DIFLUCAN [Concomitant]
     Route: 066
     Dates: start: 20070625
  8. SEPTRA [Concomitant]
     Route: 048

REACTIONS (2)
  - HERPES ZOSTER [None]
  - IMMUNE RECONSTITUTION SYNDROME [None]
